FAERS Safety Report 8139998-7 (Version None)
Quarter: 2012Q1

REPORT INFORMATION
  Report Type: 
  Country: None (occurrence: None)
  Receive Date: 20120215
  Receipt Date: 20120207
  Transmission Date: 20120608
  Serious: Yes (Other)
  Sender: FDA-Public Use
  Company Number: US-MERCK-1202USA01338

PATIENT
  Sex: Female

DRUGS (4)
  1. ZETIA [Suspect]
     Route: 048
     Dates: start: 19990101
  2. ZOCOR [Suspect]
     Route: 048
     Dates: start: 20120101
  3. FOSAMAX [Suspect]
     Route: 048
     Dates: start: 19990101
  4. ZOCOR [Suspect]
     Indication: BLOOD CHOLESTEROL INCREASED
     Route: 048
     Dates: start: 19990101, end: 20111201

REACTIONS (6)
  - PAIN [None]
  - PARAESTHESIA [None]
  - CARDIAC DISORDER [None]
  - CHOLECYSTITIS [None]
  - BLOOD CHOLESTEROL INCREASED [None]
  - MUSCLE ATROPHY [None]
